FAERS Safety Report 7333152-4 (Version None)
Quarter: 2011Q1

REPORT INFORMATION
  Report Type: 
  Country: None (occurrence: None)
  Receive Date: 20110304
  Receipt Date: 20110222
  Transmission Date: 20110831
  Serious: Yes (Other)
  Sender: FDA-Public Use
  Company Number: US-CELGENEUS-163-20785-11023245

PATIENT
  Sex: Male
  Weight: 89 kg

DRUGS (2)
  1. THALOMID [Suspect]
     Dosage: 50 MILLIGRAM
     Route: 048
     Dates: start: 20101201
  2. THALOMID [Suspect]
     Dosage: 50 MILLIGRAM
     Route: 048
     Dates: start: 20091001

REACTIONS (4)
  - LETHARGY [None]
  - DYSPNOEA [None]
  - MEMORY IMPAIRMENT [None]
  - DEMENTIA [None]
